FAERS Safety Report 5663064-3 (Version None)
Quarter: 2008Q1

REPORT INFORMATION
  Report Type: 
  Country: None (occurrence: None)
  Receive Date: 20080313
  Receipt Date: 20080303
  Transmission Date: 20080703
  Serious: Yes (Other)
  Sender: FDA-Public Use
  Company Number: US-PFIZER INC-2008020350

PATIENT
  Sex: Female
  Weight: 88.5 kg

DRUGS (7)
  1. LIPITOR [Suspect]
     Indication: BLOOD CHOLESTEROL INCREASED
  2. METFORMIN [Concomitant]
  3. HYZAAR [Concomitant]
  4. ZETIA [Concomitant]
  5. NORVASC [Concomitant]
  6. PLAVIX [Concomitant]
  7. TOPROL [Concomitant]

REACTIONS (5)
  - DIABETES MELLITUS [None]
  - HYPERTENSION [None]
  - INSOMNIA [None]
  - MEDICATION ERROR [None]
  - NO ADVERSE EVENT [None]
